FAERS Safety Report 7326236-8 (Version None)
Quarter: 2011Q1

REPORT INFORMATION
  Report Type: 
  Country: None (occurrence: None)
  Receive Date: 20110302
  Receipt Date: 20110223
  Transmission Date: 20110831
  Serious: Yes (Death)
  Sender: FDA-Public Use
  Company Number: A0911448A

PATIENT
  Age: 57 Year
  Sex: Female
  Weight: 54.5 kg

DRUGS (4)
  1. XELODA [Concomitant]
     Indication: CHEMOTHERAPY
     Dosage: 1000MG TWICE PER DAY
     Route: 048
     Dates: start: 20110115, end: 20110129
  2. ARIXTRA [Suspect]
     Dosage: 7.5MG PER DAY
     Route: 058
     Dates: start: 20101101, end: 20110131
  3. KADIAN [Concomitant]
     Indication: PAIN
     Dosage: 30MG TWICE PER DAY
     Route: 048
     Dates: start: 20101001, end: 20110101
  4. CHEMOTHERAPY [Concomitant]

REACTIONS (1)
  - PANCREATIC CARCINOMA [None]
